FAERS Safety Report 5845231-9 (Version None)
Quarter: 2008Q3

REPORT INFORMATION
  Report Type: 
  Country: None (occurrence: None)
  Receive Date: 20080814
  Receipt Date: 20080811
  Transmission Date: 20090109
  Serious: Yes (Hospitalization, Disabling)
  Sender: FDA-Public Use
  Company Number: B0528022A

PATIENT
  Age: 58 Year
  Sex: Female

DRUGS (8)
  1. SERETIDE [Suspect]
     Indication: ASTHMA
     Dosage: 500MCG TWICE PER DAY
     Route: 055
     Dates: start: 20071011, end: 20080630
  2. THEO-DUR [Concomitant]
     Route: 048
  3. ONON [Concomitant]
     Route: 048
  4. IPD [Concomitant]
     Indication: OTITIS MEDIA
     Dosage: 900MG PER DAY
     Route: 048
     Dates: start: 20080411, end: 20080609
  5. BETAMETHASONE [Concomitant]
     Indication: ASTHMA
     Dosage: 4MG PER DAY
     Route: 042
     Dates: start: 20070831, end: 20070831
  6. BETAMETHASONE [Concomitant]
     Dosage: 4MG PER DAY
     Route: 042
     Dates: start: 20070911, end: 20070911
  7. PREDONINE [Concomitant]
     Indication: ASTHMA
     Dosage: 20MG PER DAY
     Route: 048
     Dates: start: 20071001, end: 20071004
  8. PREDONINE [Concomitant]
     Dosage: 20MG PER DAY
     Route: 048
     Dates: start: 20071008, end: 20071011

REACTIONS (8)
  - ALLERGIC GRANULOMATOUS ANGIITIS [None]
  - ECZEMA [None]
  - GAIT DISTURBANCE [None]
  - HYPOAESTHESIA [None]
  - OTITIS MEDIA [None]
  - PAIN IN EXTREMITY [None]
  - PURPURA [None]
  - VASCULITIS [None]
